FAERS Safety Report 7819406-3 (Version None)
Quarter: 2011Q4

REPORT INFORMATION
  Report Type: 
  Country: None (occurrence: None)
  Receive Date: 20111018
  Receipt Date: 20101221
  Transmission Date: 20120403
  Serious: No
  Sender: FDA-Public Use
  Company Number: US-ASTRAZENECA-2010SE49674

PATIENT
  Age: 20869 Day
  Sex: Female

DRUGS (2)
  1. NEXIUM [Suspect]
     Route: 048
  2. SYMBICORT [Suspect]
     Route: 055

REACTIONS (8)
  - FAECES DISCOLOURED [None]
  - ABDOMINAL PAIN UPPER [None]
  - ABDOMINAL DISCOMFORT [None]
  - ASTHMA [None]
  - GASTRIC ULCER HAEMORRHAGE [None]
  - ARTHRITIS [None]
  - DRUG DOSE OMISSION [None]
  - NEURALGIA [None]
